FAERS Safety Report 7417040-0 (Version None)
Quarter: 2011Q2

REPORT INFORMATION
  Report Type: 
  Country: None (occurrence: None)
  Receive Date: 20110415
  Receipt Date: 20090930
  Transmission Date: 20111010
  Serious: Yes (Hospitalization, Other)
  Sender: FDA-Public Use
  Company Number: US-BAYER-200934718NA

PATIENT
  Age: 74 Year
  Sex: Female
  Weight: 68 kg

DRUGS (34)
  1. TRASYLOL [Suspect]
     Indication: CORONARY ARTERY BYPASS
     Dosage: 1 ML, ONCE (INITIAL)
     Route: 042
     Dates: start: 20041026, end: 20041026
  2. PERCODAN-DEMI [Concomitant]
     Indication: PAIN
     Dosage: 2 TABS, Q3HRS PRN
     Route: 048
  3. ADALAT CC [Concomitant]
     Dosage: 30 MG, HS
     Route: 048
  4. SYNTHROID [Concomitant]
     Dosage: 25 MCG, QD
     Route: 048
  5. TRASYLOL [Suspect]
     Dosage: 50 ML/HR, UNK
     Route: 042
     Dates: start: 20041026, end: 20041026
  6. NITROGLYCERIN [Concomitant]
     Dosage: UNK
     Dates: start: 20041026
  7. DURAGESIC [Concomitant]
     Dosage: 150MCG/HR, UNK
     Route: 061
  8. TIMOLOL [Concomitant]
     Dosage: 0.5 BOTH EYES, BID
     Route: 047
  9. LEVOPHED [Concomitant]
     Dosage: UNK
     Dates: start: 20041026
  10. MILRINONE [Concomitant]
     Dosage: UNK
     Dates: start: 20041026
  11. TRASYLOL [Suspect]
     Dosage: 200 ML PUMP PRIME, UNK
     Route: 042
     Dates: start: 20041026, end: 20041026
  12. AMBIEN [Concomitant]
     Dosage: 5 MG, PRN
     Route: 048
  13. NORVASC [Concomitant]
     Dosage: 5 MG, BID
     Route: 048
     Dates: start: 20041023
  14. VERSED [Concomitant]
     Dosage: UNK
     Dates: start: 20041026
  15. FENTANYL [Concomitant]
     Dosage: UNK
     Dates: start: 20041026
  16. PROTAMINE SULFATE [Concomitant]
     Dosage: UNK
     Dates: start: 20041026
  17. COZAAR [Concomitant]
     Dosage: 50 MG, QD
     Route: 048
  18. HEPARIN [Concomitant]
     Dosage: 20000 U, UNK
     Route: 042
     Dates: start: 20041026, end: 20041028
  19. TRASYLOL [Suspect]
     Indication: AORTIC VALVE REPLACEMENT
     Dosage: 200 ML, ONCE (LOADING)
     Route: 042
     Dates: start: 20041026, end: 20041026
  20. XALATAN [Concomitant]
     Route: 047
  21. LASIX [Concomitant]
  22. ADALAT CC [Concomitant]
     Dosage: 60 MG, QD
     Route: 048
  23. SODIUM NITROPRUSSIDE [Concomitant]
     Dosage: UNK
     Dates: start: 20041026
  24. RED BLOOD CELLS [Concomitant]
     Dosage: 4 U, UNK
     Dates: start: 20041026, end: 20041026
  25. PRILOSEC [Concomitant]
     Dosage: 20 MG, QD
     Route: 048
  26. PLAVIX [Concomitant]
  27. PEPCID [Concomitant]
     Dosage: 20 MG, UNK
     Route: 042
     Dates: start: 20041018
  28. CLONIDINE [Concomitant]
     Dosage: 1 MG, Q6HR
     Route: 048
     Dates: start: 20041018
  29. DEMEROL [Concomitant]
     Indication: PAIN
     Dosage: 25 MG, Q4HR PRN
     Route: 042
     Dates: start: 20041018
  30. METOPROLOL TARTRATE [Concomitant]
     Dosage: 25 MG, BID
     Route: 048
     Dates: start: 20041020
  31. PROPOFOL [Concomitant]
     Dosage: UNK
     Dates: start: 20041026
  32. ESMOLOL [Concomitant]
     Dosage: UNK
     Dates: start: 20041026
  33. K-DUR [Concomitant]
     Dosage: 20 MEQ, BID
     Route: 048
  34. REGULAR INSULIN [Concomitant]
     Dosage: UNK
     Route: 058
     Dates: start: 20041018

REACTIONS (8)
  - ANXIETY [None]
  - CEREBROVASCULAR ACCIDENT [None]
  - UNEVALUABLE EVENT [None]
  - PAIN [None]
  - DEPRESSION [None]
  - INJURY [None]
  - FEAR [None]
  - ANHEDONIA [None]
